FAERS Safety Report 23158121 (Version 2)
Quarter: 2023Q4

REPORT INFORMATION
  Report Type: Spontaneous
  Country: CN (occurrence: CN)
  Receive Date: 20231108
  Receipt Date: 20231116
  Transmission Date: 20240109
  Serious: Yes (Hospitalization)
  Sender: FDA-Public Use
  Company Number: CN-drreddys-LIT/CHN/23/0182898

PATIENT
  Age: 70 Year
  Sex: Male
  Weight: 72.5 kg

DRUGS (4)
  1. ABIRATERONE [Suspect]
     Active Substance: ABIRATERONE
     Indication: Prostate cancer metastatic
     Route: 048
     Dates: start: 20210414, end: 20210720
  2. GOSERELIN ACETATE [Suspect]
     Active Substance: GOSERELIN ACETATE
     Indication: Prostate cancer metastatic
     Route: 058
     Dates: start: 20200519
  3. DOCETAXEL [Suspect]
     Active Substance: DOCETAXEL\DOCETAXEL ANHYDROUS
     Indication: Prostate cancer metastatic
     Dosage: EVERY THREE WEEKS FOR ONE CYCLE
     Route: 041
     Dates: start: 20220414
  4. PREDNISONE ACETATE [Suspect]
     Active Substance: PREDNISONE ACETATE
     Indication: Prostate cancer metastatic
     Route: 048
     Dates: start: 20220414, end: 20220720

REACTIONS (3)
  - Prostate cancer [Unknown]
  - Drug resistance [Unknown]
  - Therapy partial responder [Unknown]
